FAERS Safety Report 16543475 (Version 1)
Quarter: 2019Q3

REPORT INFORMATION
  Report Type: Spontaneous
  Country: US (occurrence: US)
  Receive Date: 20190524
  Receipt Date: 20190524
  Transmission Date: 20191004
  Serious: Yes (Hospitalization)
  Sender: FDA-Public Use
  Company Number: None

PATIENT
  Age: 66 Year
  Sex: Male
  Weight: 110.8 kg

DRUGS (3)
  1. 5-FLUOROURACIL (5-FU) [Suspect]
     Active Substance: FLUOROURACIL
     Dates: end: 20190511
  2. ELOXATIN [Suspect]
     Active Substance: OXALIPLATIN
     Dates: end: 20190509
  3. LEUCOVORIN CALCIUM. [Suspect]
     Active Substance: LEUCOVORIN CALCIUM
     Dates: end: 20190509

REACTIONS (18)
  - Malaise [None]
  - White blood cell count increased [None]
  - Vomiting [None]
  - Abdominal tenderness [None]
  - Mucosal inflammation [None]
  - Pallor [None]
  - Arthralgia [None]
  - Heart rate increased [None]
  - Neutrophil count increased [None]
  - Nausea [None]
  - Hypophagia [None]
  - Diarrhoea [None]
  - Abdominal pain [None]
  - Dizziness [None]
  - Asthenia [None]
  - Colitis [None]
  - Myalgia [None]
  - Pyrexia [None]

NARRATIVE: CASE EVENT DATE: 20190514
